FAERS Safety Report 4762381-9 (Version None)
Quarter: 2005Q3

REPORT INFORMATION
  Report Type: 
  Country: None (occurrence: None)
  Receive Date: 20050902
  Receipt Date: 20050524
  Transmission Date: 20060218
  Serious: Yes (Other)
  Sender: FDA-Public Use
  Company Number: 2005S1001982

PATIENT
  Age: 55 Year
  Sex: Male

DRUGS (5)
  1. FENTANYL [Suspect]
     Indication: CERVICAL VERTEBRAL FRACTURE
     Dosage: 25 MCG/HR; QOD; TDER
     Dates: start: 20050301
  2. FENTANYL [Suspect]
     Indication: INTERVERTEBRAL DISC INJURY
     Dosage: 25 MCG/HR; QOD; TDER
     Dates: start: 20050301
  3. FENTANYL [Suspect]
     Indication: SPINAL FRACTURE
     Dosage: 25 MCG/HR; QOD; TDER
     Dates: start: 20050301
  4. PARACETAMOL/HYDROCODONE BITARTRATE [Concomitant]
  5. . [Concomitant]

REACTIONS (1)
  - DRUG INEFFECTIVE [None]
